FAERS Safety Report 5794536-9 (Version None)
Quarter: 2008Q2

REPORT INFORMATION
  Report Type: 
  Country: None (occurrence: None)
  Receive Date: 20080626
  Receipt Date: 20080613
  Transmission Date: 20081010
  Serious: Yes (Hospitalization)
  Sender: FDA-Public Use
  Company Number: TCI2008A01130

PATIENT
  Age: 73 Year
  Sex: Female

DRUGS (4)
  1. ACTOS [Suspect]
     Indication: TYPE 2 DIABETES MELLITUS
     Dosage: 15 MG (15 MG, 1 D), PER ORAL
     Route: 048
     Dates: start: 20080221
  2. AMARYL [Suspect]
     Indication: TYPE 2 DIABETES MELLITUS
     Dosage: 2 MG (2 MG, 1 D); PER ORAL
     Route: 048
  3. CANDESARTAN CILEXETIL [Concomitant]
  4. BEZATOL-SR (BEZAFIBRATE) [Concomitant]

REACTIONS (3)
  - GASTROENTERITIS [None]
  - HYPOGLYCAEMIA [None]
  - LOSS OF CONSCIOUSNESS [None]
